FAERS Safety Report 11831661 (Version 1)
Quarter: 2015Q4

REPORT INFORMATION
  Report Type: Report from Study
  Country: US (occurrence: US)
  Receive Date: 20151214
  Receipt Date: 20151214
  Transmission Date: 20160305
  Serious: Yes (Hospitalization, Other)
  Sender: FDA-Public Use
  Company Number: US-BAYER-2015-087056

PATIENT
  Age: 81 Year
  Sex: Male

DRUGS (2)
  1. NEXAVAR [Suspect]
     Active Substance: SORAFENIB
     Indication: HEPATIC CANCER
     Dosage: 400 MG (2 X 200 MG), QD
     Route: 048
  2. NEXAVAR [Suspect]
     Active Substance: SORAFENIB
     Indication: RENAL CANCER
     Dosage: 600 MG (3 X 200 MG), QD
     Route: 048
     Dates: start: 20150326, end: 2015

REACTIONS (7)
  - Surgery [None]
  - Blister [None]
  - Fall [None]
  - Palmar-plantar erythrodysaesthesia syndrome [None]
  - Lethargy [None]
  - Hospitalisation [None]
  - Somnolence [None]

NARRATIVE: CASE EVENT DATE: 20150819
